FAERS Safety Report 8534831 (Version 7)
Quarter: 2013Q1

REPORT INFORMATION
  Report Type: Report from Study
  Country: CA (occurrence: CA)
  Receive Date: 20120427
  Receipt Date: 20130131
  Transmission Date: 20140127
  Serious: Yes (Death, Hospitalization)
  Sender: FDA-Public Use
  Company Number: CA-AMGEN-CANCT2012025799

PATIENT
  Age: 56 Year
  Sex: Male

DRUGS (6)
  1. DENOSUMAB [Suspect]
     Indication: BONE GIANT CELL TUMOUR
     Dosage: UNK UNK, Q4WK
     Route: 058
     Dates: start: 20100723, end: 20120402
  2. CALCIUM [Concomitant]
     Dosage: 500 MG, BID
     Route: 048
     Dates: start: 20100723
  3. VITAMIN D [Concomitant]
     Dosage: UNK UNK, BID
     Route: 048
     Dates: start: 20100723
  4. TYLENOL [Concomitant]
     Dosage: 500 MG, PRN
     Route: 048
     Dates: start: 20100725
  5. PREGABALIN [Concomitant]
     Dosage: 150 MG, BID
     Route: 048
     Dates: start: 201203
  6. HYDROMORPHONE [Concomitant]
     Dosage: UNK
     Route: 048
     Dates: start: 20100519

REACTIONS (1)
  - Bone giant cell tumour [Fatal]
